FAERS Safety Report 26212287 (Version 1)
Quarter: 2025Q4

REPORT INFORMATION
  Report Type: Spontaneous
  Country: RU (occurrence: RU)
  Receive Date: 20251230
  Receipt Date: 20251230
  Transmission Date: 20260117
  Serious: Yes (Death, Other)
  Sender: ROCHE
  Company Number: RU-ROCHE-10000470585

PATIENT
  Age: 42 Year
  Sex: Male

DRUGS (6)
  1. ATEZOLIZUMAB [Suspect]
     Active Substance: ATEZOLIZUMAB
     Indication: Small cell carcinoma
     Dates: start: 20230802, end: 20230825
  2. ATEZOLIZUMAB [Suspect]
     Active Substance: ATEZOLIZUMAB
     Dosage: LAST ADMINISTRATION
     Dates: end: 20231025
  3. EPIRUBICIN [Suspect]
     Active Substance: EPIRUBICIN
     Indication: Small cell carcinoma
     Dosage: 25-AUG-2023: LAST ADMINISTRATION
     Dates: start: 20230802, end: 20230825
  4. EPIRUBICIN [Suspect]
     Active Substance: EPIRUBICIN
     Dosage: LAST ADMINISTRATION
     Dates: end: 20231025
  5. CYCLOPHOSPHAMIDE [Suspect]
     Active Substance: CYCLOPHOSPHAMIDE
     Indication: Small cell carcinoma
     Dosage: LAST ADMINISTRATION
     Dates: end: 20231025
  6. CYCLOPHOSPHAMIDE [Suspect]
     Active Substance: CYCLOPHOSPHAMIDE
     Dates: start: 20230802, end: 20230825

REACTIONS (3)
  - Small cell carcinoma [Unknown]
  - Death [Fatal]
  - Product dose omission issue [Unknown]

NARRATIVE: CASE EVENT DATE: 20231021
